FAERS Safety Report 10653633 (Version 1)
Quarter: 2014Q4

REPORT INFORMATION
  Report Type: Report from Study
  Country: CH (occurrence: CH)
  Receive Date: 20141216
  Receipt Date: 20141216
  Transmission Date: 20150529
  Serious: Yes (Hospitalization)
  Sender: FDA-Public Use
  Company Number: CH-ROCHE-1506701

PATIENT
  Sex: Male

DRUGS (1)
  1. BEVACIZUMAB [Suspect]
     Active Substance: BEVACIZUMAB
     Indication: GLIOBLASTOMA
     Dosage: LAST DOSE PRIOR TO SAE ON 24/NOV/2014
     Route: 042
     Dates: start: 20141017

REACTIONS (2)
  - Partial seizures [Not Recovered/Not Resolved]
  - Hemiparesis [Not Recovered/Not Resolved]
